FAERS Safety Report 8881045 (Version 1)
Quarter: 2012Q4

REPORT INFORMATION
  Report Type: 
  Country: FR (occurrence: FR)
  Receive Date: 20121101
  Receipt Date: 20121101
  Transmission Date: 20130627
  Serious: Yes (Hospitalization)
  Sender: FDA-Public Use
  Company Number: FR-PFIZER INC-2012266208

PATIENT
  Age: 64 Year
  Sex: Female

DRUGS (6)
  1. SUTENT [Suspect]
     Dosage: 50 mg, 1x/day
     Route: 048
     Dates: start: 20120820, end: 20120910
  2. PROPRANOLOL [Concomitant]
  3. SERESTA [Concomitant]
     Dosage: UNK
  4. PARACETAMOL [Concomitant]
  5. MOPRAL [Concomitant]
     Dosage: UNK
     Dates: start: 201207
  6. INNOHEP [Concomitant]
     Dosage: UNK
     Dates: start: 20120817, end: 20120831

REACTIONS (1)
  - Pancytopenia [Recovering/Resolving]
